FAERS Safety Report 13098607 (Version 1)
Quarter: 2017Q1

REPORT INFORMATION
  Report Type: Spontaneous
  Country: GB (occurrence: GB)
  Receive Date: 20170109
  Receipt Date: 20170109
  Transmission Date: 20170428
  Serious: Yes (Death, Hospitalization, Other)
  Sender: FDA-Public Use
  Company Number: GB-TEVA-545564ACC

PATIENT
  Age: 80 Year
  Sex: Female
  Weight: 56 kg

DRUGS (4)
  1. DAKTARIN? [Interacting]
     Active Substance: MICONAZOLE
     Indication: ORAL CANDIDIASIS
     Dosage: TWO TO THREE TIMES PER DAY.?
     Route: 048
     Dates: start: 20131021, end: 20131030
  2. TRAMADOL. [Concomitant]
     Active Substance: TRAMADOL
  3. PARACETAMOL [Concomitant]
     Active Substance: ACETAMINOPHEN
  4. WARFARIN [Suspect]
     Active Substance: WARFARIN
     Indication: ATRIAL FIBRILLATION
     Dosage: DOSAGE FORM: UNSPECIFIED
     Route: 065

REACTIONS (5)
  - Hemiplegia [Not Recovered/Not Resolved]
  - International normalised ratio increased [Not Recovered/Not Resolved]
  - Drug interaction [Not Recovered/Not Resolved]
  - Cerebral haemorrhage [Fatal]
  - Facial paralysis [Not Recovered/Not Resolved]

NARRATIVE: CASE EVENT DATE: 20131030
